FAERS Safety Report 10223985 (Version 2)
Quarter: 2014Q2

REPORT INFORMATION
  Report Type: Spontaneous
  Country: US (occurrence: US)
  Receive Date: 20140609
  Receipt Date: 20140623
  Transmission Date: 20141212
  Serious: Yes (Other)
  Sender: FDA-Public Use
  Company Number: 2014SP001722

PATIENT
  Sex: Female

DRUGS (1)
  1. LATUDA [Suspect]
     Route: 048

REACTIONS (6)
  - Oxygen saturation decreased [Recovered/Resolved]
  - Blood glucose increased [Unknown]
  - Blood cholesterol increased [Unknown]
  - Depression [Unknown]
  - Diabetes mellitus [Unknown]
  - Drug hypersensitivity [Unknown]
